FAERS Safety Report 10922674 (Version 1)
Quarter: 2015Q1

REPORT INFORMATION
  Report Type: Spontaneous
  Country: US (occurrence: US)
  Receive Date: 20150317
  Receipt Date: 20150317
  Transmission Date: 20150721
  Serious: Yes (Death)
  Sender: FDA-Public Use
  Company Number: US-BAYER-2015-037960

PATIENT
  Age: 89 Year
  Sex: Female
  Weight: 50 kg

DRUGS (1)
  1. BAYER EXTRA STRENGTH PM [Suspect]
     Active Substance: ASPIRIN\DIPHENHYDRAMINE
     Indication: SLEEP DISORDER THERAPY
     Dosage: UNK, QD
     Route: 048
     Dates: end: 2002

REACTIONS (3)
  - Cerebrovascular accident [Fatal]
  - Incorrect drug administration duration [None]
  - Medication error [None]

NARRATIVE: CASE EVENT DATE: 2002
